FAERS Safety Report 6418980-1 (Version None)
Quarter: 2009Q4

REPORT INFORMATION
  Report Type: 
  Country: None (occurrence: None)
  Receive Date: 20091026
  Receipt Date: 20091008
  Transmission Date: 20100525
  Serious: Yes (Death)
  Sender: FDA-Public Use
  Company Number: 09-ADE-SU-0027-ACT

PATIENT
  Age: 4 Month
  Sex: Male
  Weight: 5.1 kg

DRUGS (5)
  1. H P ACTHAR [Suspect]
     Indication: INFANTILE SPASMS
     Dosage: 40 IU/DAY WITH TAPER
     Dates: start: 20070415, end: 20070509
  2. PHENOBARBITAL [Concomitant]
  3. LANSOPRAZOLE [Concomitant]
  4. METOCLOPRAMIDE [Concomitant]
  5. GLYCOPYRROLATE INJECTION, USP [Concomitant]

REACTIONS (3)
  - IRRITABILITY [None]
  - PNEUMONIA ASPIRATION [None]
  - SOMNOLENCE [None]
